FAERS Safety Report 26066578 (Version 3)
Quarter: 2025Q4

REPORT INFORMATION
  Report Type: Spontaneous
  Country: US (occurrence: US)
  Receive Date: 20251119
  Receipt Date: 20251121
  Transmission Date: 20260117
  Serious: No
  Sender: NOVO NORDISK
  Company Number: US-NOVOPROD-1461939

PATIENT
  Age: 57 Year
  Sex: Female

DRUGS (3)
  1. TRESIBA [Suspect]
     Active Substance: INSULIN DEGLUDEC
     Indication: Latent autoimmune diabetes in adults
     Dosage: SLIDING SCALE23-25 UNITS PER DAY
     Route: 058
     Dates: start: 202110
  2. TRESIBA [Suspect]
     Active Substance: INSULIN DEGLUDEC
     Indication: Latent autoimmune diabetes in adults
     Dosage: SLIDING SCALE 23-25 UNITS PER DAY
     Route: 058
  3. NOVOLOG [Suspect]
     Active Substance: INSULIN ASPART
     Indication: Product used for unknown indication
     Dosage: UNK

REACTIONS (4)
  - Osteopenia [Unknown]
  - Blood glucose fluctuation [Unknown]
  - Blood glucose abnormal [Unknown]
  - Product use in unapproved indication [Unknown]

NARRATIVE: CASE EVENT DATE: 20250101
